FAERS Safety Report 4299207-6 (Version None)
Quarter: 2004Q1

REPORT INFORMATION
  Report Type: 
  Country: None (occurrence: None)
  Receive Date: 20040217
  Receipt Date: 20040206
  Transmission Date: 20041129
  Serious: Yes (Congenital Anomaly)
  Sender: FDA-Public Use
  Company Number: US-JNJFOC-20040201456

PATIENT
  Sex: Male
  Weight: 3.1752 kg

DRUGS (4)
  1. TOPIRAMATE [Suspect]
     Indication: MATERNAL DRUGS AFFECTING FOETUS
     Dosage: TRANSPLACENTAL
     Route: 064
     Dates: start: 20030218, end: 20030318
  2. WELLBUTRIN (BUPROPION HYDROCHLORIDE) S [Suspect]
     Indication: MATERNAL DRUGS AFFECTING FOETUS
     Dosage: TRANSLACENTAL
     Route: 064
     Dates: start: 20030301, end: 20031201
  3. PRENATAL VITAMIN (PRENATAL VITAMINS) [Concomitant]
  4. TYLENOL [Concomitant]

REACTIONS (6)
  - COMPLICATIONS OF MATERNAL EXPOSURE TO THERAPEUTIC DRUGS [None]
  - CONGENITAL ANOMALY [None]
  - MATERNAL DRUGS AFFECTING FOETUS [None]
  - PREGNANCY [None]
  - PREMATURE BABY [None]
  - TALIPES [None]
